FAERS Safety Report 9397227 (Version 2)
Quarter: 2013Q3

REPORT INFORMATION
  Report Type: Spontaneous
  Country: US (occurrence: US)
  Receive Date: 20130712
  Receipt Date: 20130725
  Transmission Date: 20140515
  Serious: Yes (Hospitalization)
  Sender: FDA-Public Use
  Company Number: US-JNJFOC-20130701783

PATIENT
  Age: 68 Year
  Sex: Female
  Weight: 79.38 kg

DRUGS (6)
  1. XARELTO [Suspect]
     Indication: CEREBROVASCULAR ACCIDENT PROPHYLAXIS
     Dosage: STRENGTH: 20 MG
     Route: 048
     Dates: start: 201203
  2. XARELTO [Suspect]
     Indication: ATRIAL FIBRILLATION
     Dosage: STRENGTH: 20 MG
     Route: 048
     Dates: start: 201203
  3. SYNTHROID [Concomitant]
     Indication: THYROID DISORDER
     Route: 065
  4. OXYCODONE [Concomitant]
     Route: 065
  5. MULTAQ [Concomitant]
     Route: 065
  6. HYDROXYZINE [Concomitant]
     Route: 065

REACTIONS (2)
  - Ischaemic stroke [Unknown]
  - Haemorrhagic stroke [Recovering/Resolving]
